FAERS Safety Report 14020094 (Version 2)
Quarter: 2017Q4

REPORT INFORMATION
  Report Type: Spontaneous
  Country: HU (occurrence: HU)
  Receive Date: 20170928
  Receipt Date: 20171003
  Transmission Date: 20180321
  Serious: Yes (Death)
  Sender: FDA-Public Use
  Company Number: HU-JNJFOC-20170927780

PATIENT
  Age: 87 Year
  Sex: Female

DRUGS (11)
  1. CONCOR [Concomitant]
     Active Substance: BISOPROLOL FUMARATE
     Dosage: OM
     Route: 048
  2. ATORIS [Concomitant]
     Active Substance: ATORVASTATIN CALCIUM
     Route: 048
  3. KALDYUM [Concomitant]
     Active Substance: POTASSIUM CHLORIDE
     Route: 048
  4. MAGNESIUM OROTATE [Concomitant]
     Route: 048
  5. XARELTO [Suspect]
     Active Substance: RIVAROXABAN
     Indication: ATRIAL FIBRILLATION
     Route: 048
     Dates: start: 20170911
  6. CITALOPRAM [Concomitant]
     Active Substance: CITALOPRAM HYDROBROMIDE
     Route: 065
  7. DIHYDROXYALUMINIUM SODIUM CARBONATE [Concomitant]
     Route: 048
  8. FURON [Concomitant]
     Active Substance: FUROSEMIDE
     Route: 048
  9. PLAVIX [Suspect]
     Active Substance: CLOPIDOGREL BISULFATE
     Indication: ATRIAL FIBRILLATION
     Route: 048
     Dates: start: 20170911
  10. ADEXOR [Concomitant]
     Dosage: OM
     Route: 048
  11. FERROUS SULFATE. [Concomitant]
     Active Substance: FERROUS SULFATE
     Route: 048

REACTIONS (1)
  - Vascular stent thrombosis [Fatal]

NARRATIVE: CASE EVENT DATE: 20170911
